FAERS Safety Report 8726228 (Version 2)
Quarter: 2012Q4

REPORT INFORMATION
  Report Type: 
  Country: DE (occurrence: DE)
  Receive Date: 20120816
  Receipt Date: 20120912
  Transmission Date: 20130627
  Serious: Yes (Other)
  Sender: FDA-Public Use
  Company Number: DE-PFIZER INC-2012194110

PATIENT
  Age: 62 Year
  Sex: Female

DRUGS (3)
  1. LYRICA [Suspect]
     Indication: BACK PAIN
     Dosage: 75 mg, 1x/day
     Dates: start: 2010
  2. FENTANYL [Suspect]
     Dosage: 75 mg, every 3 days
     Dates: start: 2010
  3. BACLOFEN [Suspect]
     Indication: BACK PAIN
     Dosage: 10 mg, 1x/day
     Dates: start: 201205, end: 2012

REACTIONS (1)
  - Asthma [Recovered/Resolved]
